FAERS Safety Report 7247161-7 (Version None)
Quarter: 2011Q1

REPORT INFORMATION
  Report Type: 
  Country: None (occurrence: None)
  Receive Date: 20110127
  Receipt Date: 20101115
  Transmission Date: 20110831
  Serious: No
  Sender: FDA-Public Use
  Company Number: US-BAUSCH-2010BL006563

PATIENT
  Age: 33 Year
  Sex: Female

DRUGS (1)
  1. ALAWAY [Suspect]
     Indication: HYPERSENSITIVITY
     Route: 047
     Dates: start: 20101111, end: 20101111

REACTIONS (1)
  - INSTILLATION SITE PAIN [None]
